FAERS Safety Report 5118158-8 (Version None)
Quarter: 2006Q4

REPORT INFORMATION
  Report Type: 
  Country: None (occurrence: None)
  Receive Date: 20061002
  Receipt Date: 20060921
  Transmission Date: 20070319
  Serious: Yes (Other)
  Sender: FDA-Public Use
  Company Number: US-JNJFOC-20060805950

PATIENT
  Sex: Female
  Weight: 50.8 kg

DRUGS (6)
  1. FENTANYL TRANSDERMAL SYSTEM [Suspect]
     Route: 062
  2. FENTANYL TRANSDERMAL SYSTEM [Suspect]
     Indication: SPINAL COLUMN STENOSIS
     Route: 062
  3. PAXIL [Concomitant]
     Indication: DEPRESSION
     Route: 048
  4. AMBIEN [Concomitant]
     Indication: SLEEP DISORDER
     Route: 048
  5. VALIUM [Concomitant]
     Route: 048
  6. DETROL [Concomitant]
     Indication: INCONTINENCE
     Route: 048

REACTIONS (7)
  - CHOLECYSTITIS [None]
  - CONSTIPATION [None]
  - FALL [None]
  - NAUSEA [None]
  - NIGHT SWEATS [None]
  - UPPER LIMB FRACTURE [None]
  - VOMITING [None]
